FAERS Safety Report 8805652 (Version 1)
Quarter: 2012Q4

REPORT INFORMATION
  Report Type: 
  Country: VE (occurrence: VE)
  Receive Date: 20120924
  Receipt Date: 20120924
  Transmission Date: 20130627
  Serious: Yes (Other)
  Sender: FDA-Public Use
  Company Number: VE-ABBOTT-12P-178-0985543-00

PATIENT
  Age: 8 Year
  Sex: Female

DRUGS (3)
  1. SEVORANE [Suspect]
     Indication: MAINTENANCE OF ANAESTHESIA
     Route: 055
     Dates: start: 20120913, end: 20120913
  2. MIDALOZAN [Concomitant]
     Indication: PRODUCT USED FOR UNKNOWN INDICATION
     Route: 048
  3. O2+N2O 850 5 [Concomitant]
     Indication: INDUCTION OF ANAESTHESIA

REACTIONS (2)
  - Delayed recovery from anaesthesia [Recovered/Resolved]
  - Respiratory arrest [Recovered/Resolved]
